FAERS Safety Report 7043663-7 (Version None)
Quarter: 2010Q4

REPORT INFORMATION
  Report Type: 
  Country: None (occurrence: None)
  Receive Date: 20101013
  Receipt Date: 20100928
  Transmission Date: 20110411
  Serious: Yes (Hospitalization)
  Sender: FDA-Public Use
  Company Number: BR-MEDIMMUNE-MEDI-0011588

PATIENT
  Sex: Male
  Weight: 9 kg

DRUGS (3)
  1. SYNAGIS [Suspect]
     Route: 030
     Dates: start: 20100708, end: 20100708
  2. SYNAGIS [Suspect]
     Route: 030
     Dates: start: 20100805, end: 20100805
  3. SODIUM CHLORIDE 0.9% [Concomitant]

REACTIONS (7)
  - BRONCHIOLITIS [None]
  - COUGH [None]
  - FATIGUE [None]
  - INCREASED BRONCHIAL SECRETION [None]
  - LOWER RESPIRATORY TRACT INFECTION [None]
  - NASAL CONGESTION [None]
  - WHEEZING [None]
